FAERS Safety Report 20572370 (Version 1)
Quarter: 2022Q1

REPORT INFORMATION
  Report Type: Spontaneous
  Country: US (occurrence: US)
  Receive Date: 20220309
  Receipt Date: 20220309
  Transmission Date: 20220423
  Serious: No
  Sender: FDA-Public Use
  Company Number: US-ELI_LILLY_AND_COMPANY-US202203002396

PATIENT
  Sex: Female

DRUGS (1)
  1. BASAGLAR [Suspect]
     Active Substance: INSULIN GLARGINE
     Indication: Type 2 diabetes mellitus
     Dosage: 50 U, UNKNOWN
     Route: 058

REACTIONS (6)
  - Pain in extremity [Unknown]
  - Back pain [Unknown]
  - Scoliosis [Unknown]
  - Arthritis [Unknown]
  - Osteoporosis [Unknown]
  - Neuralgia [Unknown]
